FAERS Safety Report 5795962-4 (Version None)
Quarter: 2008Q3

REPORT INFORMATION
  Report Type: 
  Country: None (occurrence: None)
  Receive Date: 20080701
  Receipt Date: 20080619
  Transmission Date: 20090109
  Serious: Yes (Other)
  Sender: FDA-Public Use
  Company Number: US-JNJFOC-20080605569

PATIENT
  Sex: Male
  Weight: 92.99 kg

DRUGS (7)
  1. DURAGESIC-100 [Suspect]
     Route: 062
  2. DURAGESIC-100 [Suspect]
     Route: 062
  3. DURAGESIC-100 [Suspect]
     Route: 062
  4. DURAGESIC-100 [Suspect]
     Indication: PAIN
     Route: 062
  5. FLOMAX [Concomitant]
     Indication: PROSTATOMEGALY
     Route: 048
  6. NEXIUM [Concomitant]
     Indication: GASTRIC DISORDER
     Route: 048
  7. DIPENTUM [Concomitant]
     Indication: IRRITABLE BOWEL SYNDROME
     Route: 048

REACTIONS (11)
  - AGITATION [None]
  - ANXIETY [None]
  - BLOOD TESTOSTERONE DECREASED [None]
  - DEPRESSION [None]
  - DRUG INEFFECTIVE [None]
  - HEADACHE [None]
  - HYPOTHALAMO-PITUITARY DISORDER [None]
  - INAPPROPRIATE SCHEDULE OF DRUG ADMINISTRATION [None]
  - INTESTINAL FUNCTIONAL DISORDER [None]
  - LYMPHOMA [None]
  - PHARMACEUTICAL PRODUCT COMPLAINT [None]
